FAERS Safety Report 6649123-7 (Version None)
Quarter: 2010Q1

REPORT INFORMATION
  Report Type: 
  Country: None (occurrence: None)
  Receive Date: 20100319
  Receipt Date: 20100316
  Transmission Date: 20100710
  Serious: Yes (Death, Hospitalization)
  Sender: FDA-Public Use
  Company Number: 2010SP009703

PATIENT
  Age: 62 Year
  Sex: Male

DRUGS (1)
  1. TEMODAL [Suspect]
     Indication: LYMPHOMA
     Dosage: 280 MG; PO
     Route: 048
     Dates: start: 20091101, end: 20100201

REACTIONS (1)
  - PLATELET COUNT DECREASED [None]
